FAERS Safety Report 24716701 (Version 1)
Quarter: 2024Q4

REPORT INFORMATION
  Report Type: Spontaneous
  Country: US (occurrence: None)
  Receive Date: 20241210
  Receipt Date: 20241210
  Transmission Date: 20250115
  Serious: Yes (Hospitalization)
  Sender: Public
  Company Number: None

PATIENT
  Age: 63 Year
  Sex: Male
  Weight: 69.4 kg

DRUGS (2)
  1. CARBOPLATIN [Suspect]
     Active Substance: CARBOPLATIN
     Dates: end: 20241114
  2. PACLITAXEL [Suspect]
     Active Substance: PACLITAXEL
     Dates: end: 20241114

REACTIONS (1)
  - Anaemia [None]

NARRATIVE: CASE EVENT DATE: 20241206
